FAERS Safety Report 8503736-6 (Version None)
Quarter: 2012Q3

REPORT INFORMATION
  Report Type: 
  Country: None (occurrence: None)
  Receive Date: 20120711
  Receipt Date: 20120702
  Transmission Date: 20120928
  Serious: No
  Sender: FDA-Public Use
  Company Number: US-009507513-1207USA000369

PATIENT

DRUGS (5)
  1. PROVENTIL [Suspect]
     Indication: ASTHMA
     Dosage: 2 DF, Q4H
     Route: 048
     Dates: start: 20120601
  2. LIPITOR [Concomitant]
  3. PREMARIN [Concomitant]
  4. LISINOPRIL [Concomitant]
  5. ETODOLAC [Concomitant]

REACTIONS (3)
  - VOMITING [None]
  - RETCHING [None]
  - DYSGEUSIA [None]
